FAERS Safety Report 6569808-0 (Version None)
Quarter: 2010Q1

REPORT INFORMATION
  Report Type: 
  Country: None (occurrence: None)
  Receive Date: 20100204
  Receipt Date: 20100126
  Transmission Date: 20100710
  Serious: Yes (Death, Other)
  Sender: FDA-Public Use
  Company Number: US-BAXTER-2009BH018288

PATIENT
  Age: 82 Year
  Sex: Female

DRUGS (3)
  1. HEPARIN SODIUM INJECTION [Suspect]
     Indication: OPEN REDUCTION OF FRACTURE
     Route: 058
     Dates: start: 20070801
  2. INSULIN [Concomitant]
     Indication: DIABETES MELLITUS
     Route: 065
  3. LOVASTATIN [Concomitant]
     Indication: DRUG USE FOR UNKNOWN INDICATION
     Route: 065

REACTIONS (29)
  - ACUTE RESPIRATORY DISTRESS SYNDROME [None]
  - ASTHENIA [None]
  - ATRIAL FIBRILLATION [None]
  - ATRIAL FLUTTER [None]
  - CITROBACTER INFECTION [None]
  - DECUBITUS ULCER [None]
  - DIABETES MELLITUS [None]
  - ERYTHEMA [None]
  - FEMUR FRACTURE [None]
  - HEPATIC FAILURE [None]
  - HYPERTENSION [None]
  - HYPOTENSION [None]
  - HYPOTHYROIDISM [None]
  - INFECTION [None]
  - MULTI-ORGAN FAILURE [None]
  - MYOPATHY [None]
  - OBESITY [None]
  - PHARYNGEAL OEDEMA [None]
  - PSEUDOMONAL BACTERAEMIA [None]
  - PSEUDOMONAS INFECTION [None]
  - RASH [None]
  - RENAL FAILURE [None]
  - RESPIRATORY FAILURE [None]
  - SEPSIS [None]
  - SEPTIC SHOCK [None]
  - SKIN EXFOLIATION [None]
  - SOFT TISSUE NECROSIS [None]
  - THROMBOCYTOPENIA [None]
  - URINARY TRACT INFECTION PSEUDOMONAL [None]
